FAERS Safety Report 14403990 (Version 1)
Quarter: 2018Q1

REPORT INFORMATION
  Report Type: Spontaneous
  Country: US (occurrence: US)
  Receive Date: 20180117
  Receipt Date: 20180117
  Transmission Date: 20180509
  Serious: No
  Sender: FDA-Public Use
  Company Number: US-B.I. PHARMACEUTICALS,INC./RIDGEFIELD-2018-BI-001884

PATIENT

DRUGS (1)
  1. OFEV [Suspect]
     Active Substance: NINTEDANIB
     Indication: PRODUCT USED FOR UNKNOWN INDICATION
     Route: 065

REACTIONS (22)
  - Fatigue [Unknown]
  - Condition aggravated [Unknown]
  - Dyspnoea [Unknown]
  - Bone pain [Unknown]
  - Cough [Unknown]
  - Dizziness [Unknown]
  - Neck pain [Unknown]
  - Cyanosis [Unknown]
  - Tachycardia [Unknown]
  - Oedema peripheral [Unknown]
  - Asthenia [Unknown]
  - Diarrhoea [Unknown]
  - Headache [Unknown]
  - Dysgeusia [Unknown]
  - Swelling face [Unknown]
  - Chest pain [Unknown]
  - Walking disability [Unknown]
  - Hypoaesthesia [Unknown]
  - Decreased appetite [Unknown]
  - Unevaluable event [Unknown]
  - Nausea [Unknown]
  - Feeling abnormal [Unknown]
